FAERS Safety Report 26076372 (Version 1)
Quarter: 2025Q4

REPORT INFORMATION
  Report Type: Spontaneous
  Country: EU (occurrence: EU)
  Receive Date: 20251121
  Receipt Date: 20251121
  Transmission Date: 20260117
  Serious: Yes (Life-Threatening, Other)
  Sender: FRESENIUS KABI
  Company Number: EU-FreseniusKabi-FK202515737

PATIENT
  Age: 55 Year
  Sex: Female
  Weight: 63 kg

DRUGS (4)
  1. PROPOFOL [Suspect]
     Active Substance: PROPOFOL
     Indication: Anaesthesia
     Dosage: FOA: VIALS, EMULSION FOR INJECTION/INFUSION
     Route: 042
     Dates: start: 20251030, end: 20251030
  2. SUFENTANIL CITRATE [Suspect]
     Active Substance: SUFENTANIL CITRATE
     Indication: Anaesthesia
     Dosage: FOA: AMPOULES, SOLUTION FOR INJECTION/INFUSION
     Route: 042
     Dates: start: 20251030, end: 20251030
  3. VECURONIUM BROMIDE [Suspect]
     Active Substance: VECURONIUM BROMIDE
     Indication: Anaesthesia
     Dosage: FOA: POWDER FOR SOLUTION FOR INJECTION/INFUSION
     Route: 042
     Dates: start: 20251030, end: 20251030
  4. LIDOCAINE [Concomitant]
     Active Substance: LIDOCAINE
     Indication: Anaesthesia
     Dosage: FOA: SOLUTION FOR INJECTION/INFUSION
     Route: 042
     Dates: start: 20251030, end: 20251030

REACTIONS (4)
  - Anaphylactic shock [Recovered/Resolved]
  - Hypotension [Recovered/Resolved]
  - Bronchospasm [Recovered/Resolved]
  - Erythema [Recovered/Resolved]

NARRATIVE: CASE EVENT DATE: 20251030
